FAERS Safety Report 8369856-4 (Version None)
Quarter: 2012Q2

REPORT INFORMATION
  Report Type: 
  Country: None (occurrence: None)
  Receive Date: 20120518
  Receipt Date: 20120517
  Transmission Date: 20120825
  Serious: Yes (Other)
  Sender: FDA-Public Use
  Company Number: BR-PFIZER INC-2012115477

PATIENT
  Age: 39 Year
  Sex: Male

DRUGS (8)
  1. LYRICA [Suspect]
     Indication: HEADACHE
     Dosage: 75 MG (ONE TABLET), 1X/DAY
     Route: 048
     Dates: start: 20120401
  2. PHENYTOIN [Concomitant]
  3. CLONAZEPAM [Concomitant]
  4. SYNTHROID [Concomitant]
  5. LACTULOSE [Concomitant]
  6. MINILAX [Concomitant]
  7. DEPAKENE [Concomitant]
  8. PHENOBARBITAL [Concomitant]

REACTIONS (1)
  - CONVULSION [None]
